FAERS Safety Report 18287471 (Version 3)
Quarter: 2021Q1

REPORT INFORMATION
  Report Type: Spontaneous
  Country: RU (occurrence: RU)
  Receive Date: 20200921
  Receipt Date: 20210112
  Transmission Date: 20210419
  Serious: Yes (Life-Threatening, Hospitalization, Other)
  Sender: FDA-Public Use
  Company Number: RU-DRREDDYS-USA/RUS/20/0127010

PATIENT
  Age: 3 Month
  Sex: Male

DRUGS (2)
  1. CIPROFLOXACIN. [Suspect]
     Active Substance: CIPROFLOXACIN
     Indication: PYELONEPHRITIS
  2. CIPROFLOXACIN. [Suspect]
     Active Substance: CIPROFLOXACIN
     Indication: PSEUDOMONAS INFECTION

REACTIONS (3)
  - Hepatomegaly [Recovered/Resolved]
  - Drug-induced liver injury [Recovered/Resolved]
  - Drug hypersensitivity [Recovered/Resolved]
